FAERS Safety Report 18517069 (Version 1)
Quarter: 2020Q4

REPORT INFORMATION
  Report Type: Report from Study
  Country: US (occurrence: US)
  Receive Date: 20201118
  Receipt Date: 20201118
  Transmission Date: 20210114
  Serious: Yes (Hospitalization, Other)
  Sender: FDA-Public Use
  Company Number: US-ADIENNEP-2020AD000549

PATIENT
  Age: 12 Year
  Sex: Female

DRUGS (7)
  1. MYCOPHENOLATE MOFETIL. [Suspect]
     Active Substance: MYCOPHENOLATE MOFETIL
     Indication: PROPHYLAXIS AGAINST GRAFT VERSUS HOST DISEASE
  2. ANTI-THYMOCYTE GLOBULIN (RABBIT) NOS [Suspect]
     Active Substance: LAPINE T-LYMPHOCYTE IMMUNE GLOBULIN
     Indication: PROPHYLAXIS AGAINST GRAFT VERSUS HOST DISEASE
     Dosage: 1 MG/KG TEST DOSE IV ON DAY -4
     Route: 042
  3. MELPHALAN. [Suspect]
     Active Substance: MELPHALAN
     Indication: ALLOGENIC STEM CELL TRANSPLANTATION
     Dosage: 70 MG/M2 IV DAILY ON DAYS -3 AND -2
     Route: 042
  4. TACROLIMUS. [Suspect]
     Active Substance: TACROLIMUS
     Indication: PROPHYLAXIS AGAINST GRAFT VERSUS HOST DISEASE
  5. FLUDARABINE [Suspect]
     Active Substance: FLUDARABINE PHOSPHATE
     Indication: ALLOGENIC STEM CELL TRANSPLANTATION
     Dosage: 30 MG/M2/DAY IV DAILY ON DAYS -9 TO -5
     Route: 042
  6. THIOTEPA. [Suspect]
     Active Substance: THIOTEPA
     Indication: ALLOGENIC STEM CELL TRANSPLANTATION
     Dosage: 5 MG/KG/DOSE IV EVERY 12 HOURS ON DAY -4
     Route: 042
  7. ANTI-THYMOCYTE GLOBULIN (RABBIT) NOS [Suspect]
     Active Substance: LAPINE T-LYMPHOCYTE IMMUNE GLOBULIN
     Indication: PROPHYLAXIS AGAINST GRAFT VERSUS HOST DISEASE
     Dosage: 3 MG/KG IV DAILY ON DAYS -3, -2, AND -1
     Route: 042

REACTIONS (12)
  - Corynebacterium bacteraemia [Unknown]
  - Clostridium difficile colitis [Unknown]
  - Respiratory syncytial virus infection [Unknown]
  - Respiratory tract infection viral [Unknown]
  - Vascular device infection [Unknown]
  - Chronic graft versus host disease [Unknown]
  - Staphylococcal bacteraemia [Unknown]
  - Klebsiella infection [Unknown]
  - Citrobacter infection [Unknown]
  - Urinary tract infection bacterial [Unknown]
  - Acute graft versus host disease [Unknown]
  - Escherichia urinary tract infection [Unknown]
